FAERS Safety Report 20068272 (Version 1)
Quarter: 2021Q4

REPORT INFORMATION
  Report Type: Spontaneous
  Country: CN (occurrence: CN)
  Receive Date: 20211115
  Receipt Date: 20211115
  Transmission Date: 20220303
  Serious: Yes (Other)
  Sender: FDA-Public Use
  Company Number: CN-BAYER-2021A249371

PATIENT
  Age: 36 Year
  Sex: Female
  Weight: 48 kg

DRUGS (3)
  1. ULTRAVIST [Suspect]
     Active Substance: IOPROMIDE
     Indication: Cervix carcinoma
     Dosage: 90 ML, ONCE
     Route: 042
     Dates: start: 20211104, end: 20211104
  2. ULTRAVIST [Suspect]
     Active Substance: IOPROMIDE
     Indication: Breast scan
  3. ULTRAVIST [Suspect]
     Active Substance: IOPROMIDE
     Indication: Abdomen scan

REACTIONS (3)
  - Dizziness [Recovered/Resolved]
  - Dyspnoea [Recovered/Resolved]
  - Tachypnoea [Recovered/Resolved]

NARRATIVE: CASE EVENT DATE: 20211104
